FAERS Safety Report 14032439 (Version 2)
Quarter: 2017Q4

REPORT INFORMATION
  Report Type: Spontaneous
  Country: US (occurrence: US)
  Receive Date: 20171002
  Receipt Date: 20171107
  Transmission Date: 20180321
  Serious: Yes (Other)
  Sender: FDA-Public Use
  Company Number: US-SUNOVION-2017SUN004204

PATIENT
  Sex: Female

DRUGS (2)
  1. ABILIFY [Suspect]
     Active Substance: ARIPIPRAZOLE
     Indication: BIPOLAR II DISORDER
     Dosage: 2 MG, UNK
  2. LATUDA [Suspect]
     Active Substance: LURASIDONE HYDROCHLORIDE
     Indication: BIPOLAR II DISORDER
     Dosage: UNK
     Route: 048

REACTIONS (4)
  - Muscle spasms [Unknown]
  - Off label use [Unknown]
  - Suicidal ideation [Recovered/Resolved]
  - Pain in extremity [Unknown]
